FAERS Safety Report 8778642 (Version 1)
Quarter: 2012Q4

REPORT INFORMATION
  Report Type: 
  Country: CN (occurrence: CN)
  Receive Date: 20120912
  Receipt Date: 20120912
  Transmission Date: 20130627
  Serious: Yes (Other)
  Sender: FDA-Public Use
  Company Number: CN-BRISTOL-MYERS SQUIBB COMPANY-16881765

PATIENT
  Age: 58 Year
  Sex: Male
  Weight: 65 kg

DRUGS (1)
  1. CEPHRADINE [Suspect]
     Indication: ACUTE TONSILLITIS
     Dosage: 1df=1piece
     Route: 049
     Dates: start: 20110805, end: 20110808

REACTIONS (1)
  - Anaphylactoid reaction [Recovered/Resolved]
